FAERS Safety Report 5377604-5 (Version None)
Quarter: 2007Q3

REPORT INFORMATION
  Report Type: 
  Country: None (occurrence: None)
  Receive Date: 20070703
  Receipt Date: 20070622
  Transmission Date: 20080115
  Serious: Yes (Hospitalization, Other)
  Sender: FDA-Public Use
  Company Number: JP-PFIZER INC-2007049356

PATIENT
  Sex: Female
  Weight: 16.8 kg

DRUGS (5)
  1. ZITHROMAC [Suspect]
     Indication: BRONCHITIS
     Dates: start: 20070605, end: 20070607
  2. MEPTIN [Interacting]
     Indication: BRONCHITIS
     Route: 048
     Dates: start: 20070605, end: 20070607
  3. ASVERIN [Concomitant]
     Route: 048
     Dates: start: 20070605, end: 20070607
  4. ONON [Concomitant]
     Route: 048
     Dates: start: 20070605, end: 20070607
  5. PERIACTIN [Concomitant]
     Route: 048
     Dates: start: 20070605, end: 20070607

REACTIONS (2)
  - DRUG INTERACTION [None]
  - VENTRICULAR EXTRASYSTOLES [None]
